FAERS Safety Report 9814788 (Version 3)
Quarter: 2014Q1

REPORT INFORMATION
  Report Type: Spontaneous
  Country: US (occurrence: US)
  Receive Date: 20140113
  Receipt Date: 20140219
  Transmission Date: 20141002
  Serious: Yes (Other)
  Sender: FDA-Public Use
  Company Number: CHPA2014US000582

PATIENT
  Age: 38 Year
  Sex: Female

DRUGS (2)
  1. PREVACID 24HR 15MG [Suspect]
     Dosage: 15 MG, QD
     Route: 048
     Dates: start: 2012
  2. REMICADE [Concomitant]
     Indication: RHEUMATOID ARTHRITIS

REACTIONS (2)
  - Pneumonia [Recovering/Resolving]
  - Incorrect drug administration duration [Unknown]
